FAERS Safety Report 11989885 (Version 1)
Quarter: 2016Q1

REPORT INFORMATION
  Report Type: Spontaneous
  Country: US (occurrence: US)
  Receive Date: 20160202
  Receipt Date: 20160202
  Transmission Date: 20160526
  Serious: No
  Sender: FDA-Public Use
  Company Number: US-IMPAX LABORATORIES, INC-2015-IPXL-01209

PATIENT
  Age: 78 Year
  Sex: Male
  Weight: 82.54 kg

DRUGS (3)
  1. RYTARY [Suspect]
     Active Substance: CARBIDOPA\LEVODOPA
     Indication: PARKINSON^S DISEASE
     Dosage: (48.75/ 195 MG) FOUR CAPSULES, FOUR TIMES DAILY
     Route: 048
     Dates: start: 20151020
  2. TRAZODONE [Concomitant]
     Active Substance: TRAZODONE HYDROCHLORIDE
     Indication: INSOMNIA
     Dosage: 50 MG, UNK
     Route: 065
  3. VENLAFAXINE [Concomitant]
     Active Substance: VENLAFAXINE HYDROCHLORIDE
     Indication: PRODUCT USED FOR UNKNOWN INDICATION
     Dosage: UNK
     Route: 065

REACTIONS (4)
  - Unresponsive to stimuli [Recovered/Resolved]
  - Dysarthria [Recovered/Resolved]
  - Eyelid function disorder [Recovered/Resolved]
  - Nightmare [Recovered/Resolved]

NARRATIVE: CASE EVENT DATE: 20151118
